FAERS Safety Report 4701998-4 (Version None)
Quarter: 2005Q2

REPORT INFORMATION
  Report Type: 
  Country: None (occurrence: None)
  Receive Date: 20050627
  Receipt Date: 20050610
  Transmission Date: 20051028
  Serious: Yes (Death, Hospitalization, Other)
  Sender: FDA-Public Use
  Company Number: 2005-BP-09882RO

PATIENT
  Age: 79 Year
  Sex: Female
  Weight: 81.8 kg

DRUGS (13)
  1. PREDNISONE TAB [Suspect]
     Indication: METASTASES TO CENTRAL NERVOUS SYSTEM
     Dosage: 20 MG QD ORAL (NR), PO
     Route: 048
  2. TEMODAR [Suspect]
     Indication: METASTASES TO CENTRAL NERVOUS SYSTEM
     Dosage: 75 MG/M^2 QD ORAL (NR), PO
     Route: 048
     Dates: start: 20050317, end: 20050404
  3. DECADRON [Suspect]
     Indication: METASTASES TO CENTRAL NERVOUS SYSTEM
     Dosage: 4 MG QD (NR), NR
  4. ADVAIR DISKUS 100/50 [Concomitant]
  5. CARDIZEM [Concomitant]
  6. PAXIL [Concomitant]
  7. K-LYTE (POTASSIUM CHLORIDE) [Concomitant]
  8. PROTONIX [Concomitant]
  9. VITRON-C (VITRON-C) [Concomitant]
  10. TYLENOL W/CODEINE NO. 3 (PANADEINE CO) [Concomitant]
  11. AMBIEN [Concomitant]
  12. TYLENOL [Concomitant]
  13. PHENERGAN [Concomitant]

REACTIONS (17)
  - ATELECTASIS [None]
  - AZOTAEMIA [None]
  - BLOOD TRIGLYCERIDES INCREASED [None]
  - CHEST DISCOMFORT [None]
  - DEEP VEIN THROMBOSIS [None]
  - DEHYDRATION [None]
  - DIABETES MELLITUS INADEQUATE CONTROL [None]
  - DIZZINESS [None]
  - DYSLIPIDAEMIA [None]
  - DYSSTASIA [None]
  - HAEMATOCHEZIA [None]
  - HYPERGLYCAEMIA [None]
  - LETHARGY [None]
  - LOW DENSITY LIPOPROTEIN INCREASED [None]
  - ORAL CANDIDIASIS [None]
  - PNEUMONIA STAPHYLOCOCCAL [None]
  - REFUSAL OF TREATMENT BY PATIENT [None]
